FAERS Safety Report 5504551-8 (Version None)
Quarter: 2007Q4

REPORT INFORMATION
  Report Type: 
  Country: None (occurrence: None)
  Receive Date: 20071030
  Receipt Date: 20071016
  Transmission Date: 20080405
  Serious: Yes (Other)
  Sender: FDA-Public Use
  Company Number: 2007JP004835

PATIENT
  Age: 59 Year
  Sex: Male

DRUGS (1)
  1. PROGRAF [Suspect]
     Indication: CORD BLOOD TRANSPLANT THERAPY

REACTIONS (5)
  - BLOOD LACTATE DEHYDROGENASE INCREASED [None]
  - HISTIOCYTOSIS HAEMATOPHAGIC [None]
  - PYREXIA [None]
  - SERUM FERRITIN INCREASED [None]
  - WEIGHT INCREASED [None]
